FAERS Safety Report 6914349-1 (Version None)
Quarter: 2010Q3

REPORT INFORMATION
  Report Type: 
  Country: None (occurrence: None)
  Receive Date: 20100809
  Receipt Date: 20100805
  Transmission Date: 20110219
  Serious: Yes (Hospitalization)
  Sender: FDA-Public Use
  Company Number: FR-SHIRE-SPV1-2010-00721

PATIENT

DRUGS (2)
  1. FOSRENOL [Suspect]
     Indication: PRODUCT USED FOR UNKNOWN INDICATION
     Dosage: 750 MG, UNKNOWN
     Route: 065
  2. PHOSPHORE                          /00859901/ [Suspect]
     Route: 048
     Dates: start: 20100315, end: 20100315

REACTIONS (2)
  - DRUG DISPENSING ERROR [None]
  - NO ADVERSE EVENT [None]
